FAERS Safety Report 25310434 (Version 1)
Quarter: 2025Q2

REPORT INFORMATION
  Report Type: Spontaneous
  Country: TW (occurrence: TW)
  Receive Date: 20250514
  Receipt Date: 20250514
  Transmission Date: 20250716
  Serious: Yes (Other)
  Sender: BOEHRINGER INGELHEIM
  Company Number: TW-BoehringerIngelheim-2025-BI-026261

PATIENT
  Age: 73 Year
  Sex: Female

DRUGS (6)
  1. LINAGLIPTIN\METFORMIN HYDROCHLORIDE [Suspect]
     Active Substance: LINAGLIPTIN\METFORMIN HYDROCHLORIDE
     Indication: Product used for unknown indication
     Dosage: 850.0MG/2.5MG 1 TAB BID?.
     Dates: start: 20241127
  2. PIOGLITAZONE [Suspect]
     Active Substance: PIOGLITAZONE
     Indication: Type 2 diabetes mellitus
     Dates: start: 20240829, end: 20241216
  3. AMLODIPINE BESYLATE\OLMESARTAN MEDOXOMIL [Suspect]
     Active Substance: AMLODIPINE BESYLATE\OLMESARTAN MEDOXOMIL
     Indication: Product used for unknown indication
     Dosage: 6.94MG/40.0MG
     Dates: start: 20241209, end: 20241216
  4. Novamin Tablets [Concomitant]
     Indication: Product used for unknown indication
     Dates: start: 20241209, end: 20241212
  5. Biso F.C. Tablets [Concomitant]
     Indication: Product used for unknown indication
     Dates: start: 20240829
  6. ATORVASTATIN [Concomitant]
     Active Substance: ATORVASTATIN
     Indication: Product used for unknown indication
     Dates: start: 20240717

REACTIONS (3)
  - Oedema [Unknown]
  - Vomiting [Unknown]
  - Dyspnoea [Unknown]

NARRATIVE: CASE EVENT DATE: 20241211
